FAERS Safety Report 25527988 (Version 1)
Quarter: 2025Q3

REPORT INFORMATION
  Report Type: Spontaneous
  Country: EU (occurrence: EU)
  Receive Date: 20250708
  Receipt Date: 20250708
  Transmission Date: 20251020
  Serious: Yes (Death)
  Sender: ORGANON
  Company Number: None

PATIENT
  Age: 61 Year
  Sex: Female

DRUGS (6)
  1. MIRTAZAPINE [Suspect]
     Active Substance: MIRTAZAPINE
     Indication: Depression
     Dosage: HALF A TABLET DAILY
     Route: 048
     Dates: start: 20250410, end: 20250423
  2. MIRTAZAPINE [Suspect]
     Active Substance: MIRTAZAPINE
     Dosage: 30 MG DAILY IN THE EVENING
     Route: 048
     Dates: start: 20250423, end: 20250502
  3. VENLAFAXINE [Suspect]
     Active Substance: VENLAFAXINE HYDROCHLORIDE
     Indication: Depression
     Dosage: 37.5 MG DAILY
     Route: 048
     Dates: start: 20250305, end: 20250312
  4. VENLAFAXINE [Suspect]
     Active Substance: VENLAFAXINE HYDROCHLORIDE
     Dosage: 70 MG DAILY
     Route: 048
     Dates: start: 20250313, end: 20250328
  5. VENLAFAXINE [Suspect]
     Active Substance: VENLAFAXINE HYDROCHLORIDE
     Dosage: 37.5 MG DAILY
     Route: 048
     Dates: start: 20250329, end: 20250422
  6. VENLAFAXINE [Suspect]
     Active Substance: VENLAFAXINE HYDROCHLORIDE
     Dates: end: 20250423

REACTIONS (5)
  - Mental impairment [Fatal]
  - Agitation [Fatal]
  - Feeling guilty [Fatal]
  - Completed suicide [Fatal]
  - Drug ineffective [Fatal]

NARRATIVE: CASE EVENT DATE: 20250305
